FAERS Safety Report 5266612-0 (Version None)
Quarter: 2007Q1

REPORT INFORMATION
  Report Type: 
  Country: None (occurrence: None)
  Receive Date: 20070315
  Receipt Date: 20070306
  Transmission Date: 20070707
  Serious: Yes (Hospitalization)
  Sender: FDA-Public Use
  Company Number: FR-ABBOTT-07P-056-0361060-00

PATIENT
  Age: 61 Year
  Sex: Male

DRUGS (6)
  1. KALETRA [Suspect]
     Indication: HIV INFECTION
     Dates: start: 20031028, end: 20070117
  2. ZOPICLONE [Concomitant]
     Indication: SLEEP DISORDER
     Route: 048
  3. ALLOPURINOL [Concomitant]
     Indication: GOUTY ARTHRITIS
     Route: 048
  4. STAVUDINE [Concomitant]
     Indication: HIV INFECTION
     Dosage: 30 MG X 2
     Route: 048
     Dates: start: 19960612
  5. DIDANOSINE [Concomitant]
     Indication: HIV INFECTION
     Route: 048
     Dates: start: 19960612
  6. BROMAZEPAM [Concomitant]
     Indication: ANXIETY
     Route: 048

REACTIONS (3)
  - ACUTE CORONARY SYNDROME [None]
  - HYPERGLYCAEMIA [None]
  - HYPERLIPIDAEMIA [None]
